FAERS Safety Report 7032255-1 (Version None)
Quarter: 2010Q4

REPORT INFORMATION
  Report Type: 
  Country: None (occurrence: None)
  Receive Date: 20101007
  Receipt Date: 20100412
  Transmission Date: 20110411
  Serious: Yes (Hospitalization, Other)
  Sender: FDA-Public Use
  Company Number: DE-BRISTOL-MYERS SQUIBB COMPANY-15061013

PATIENT
  Age: 74 Year
  Sex: Male
  Weight: 84 kg

DRUGS (3)
  1. CETUXIMAB [Suspect]
     Indication: NON-SMALL CELL LUNG CANCER
     Dosage: RECENT INFUSION ON 31-MAR-2010.STRENGTH 2MG/ML 400MG/M2, ALSO TAKEN THIS DOSE 495MG/M2WEEKLY
     Route: 042
     Dates: start: 20100121
  2. DOCETAXEL [Suspect]
     Indication: NON-SMALL CELL LUNG CANCER
     Dosage: RECENT INFUSION ON 31-MAR-2010. 75MG/M2: 09MAR10-UNK 150MG/M2:UNK
     Route: 042
     Dates: start: 20100309
  3. GEMCITABINE [Suspect]
     Indication: NON-SMALL CELL LUNG CANCER
     Dosage: RECENT INFUSION ON 23-FEB-2010. 1000MG/M2:26JAN10 1976MG/M2: UNK
     Route: 042
     Dates: start: 20100126

REACTIONS (1)
  - DEEP VEIN THROMBOSIS [None]
